FAERS Safety Report 7282175-2 (Version None)
Quarter: 2011Q1

REPORT INFORMATION
  Report Type: 
  Country: None (occurrence: None)
  Receive Date: 20110209
  Receipt Date: 20110203
  Transmission Date: 20110831
  Serious: Yes (Hospitalization, Other)
  Sender: FDA-Public Use
  Company Number: US-ASTRAZENECA-2011SE06369

PATIENT
  Age: 478 Month
  Sex: Male

DRUGS (10)
  1. SEROQUEL [Suspect]
     Route: 048
     Dates: start: 20060912
  2. TOPROL-XL [Concomitant]
     Dates: start: 20060809
  3. ENALAPRIL MALEATE [Concomitant]
     Route: 048
     Dates: start: 20080225
  4. TRAZODONE [Concomitant]
     Dates: start: 20061207
  5. MOTRIN [Concomitant]
     Indication: PAIN
     Dosage: 600 MG TID PRN
     Route: 048
     Dates: start: 20080225
  6. COUMADIN [Concomitant]
     Route: 048
     Dates: start: 20080225
  7. COUMADIN [Concomitant]
     Dosage: 5 MG,7.5 MG DISPENSED
     Dates: start: 20060918
  8. NAPROXEN [Concomitant]
     Dates: start: 20060925
  9. PAROXETINE HCL [Concomitant]
     Dosage: 10 MG, 20 MG DISPENSED
     Dates: start: 20061002
  10. DEPAKOTE [Concomitant]
     Dosage: 500 MG ONE TABLET IN THE AM AND TWO TABS IN THE PM
     Route: 048
     Dates: start: 20080225

REACTIONS (11)
  - HYPERTENSION [None]
  - CHEST PAIN [None]
  - BIPOLAR I DISORDER [None]
  - DEEP VEIN THROMBOSIS [None]
  - DIABETIC KETOACIDOSIS [None]
  - DIABETES MELLITUS INADEQUATE CONTROL [None]
  - ESSENTIAL HYPERTENSION [None]
  - SUICIDAL IDEATION [None]
  - COAGULOPATHY [None]
  - SCHIZOPHRENIA [None]
  - BIPOLAR DISORDER [None]
